FAERS Safety Report 9690329 (Version 1)
Quarter: 2013Q4

REPORT INFORMATION
  Report Type: Spontaneous
  Country: US (occurrence: None)
  Receive Date: 20131114
  Receipt Date: 20131114
  Transmission Date: 20140711
  Serious: No
  Sender: FDA-Public Use
  Company Number: None

PATIENT
  Age: 83 Year
  Sex: Male

DRUGS (1)
  1. LUCENTIS [Suspect]
     Indication: RETINAL OEDEMA
     Dosage: 0.5MG, ONCE A MONTH, INTRAVITREALLY
     Dates: start: 20130918

REACTIONS (1)
  - Lacrimation increased [None]
